FAERS Safety Report 8271357-9 (Version None)
Quarter: 2012Q2

REPORT INFORMATION
  Report Type: 
  Country: None (occurrence: None)
  Receive Date: 20120410
  Receipt Date: 20120119
  Transmission Date: 20120825
  Serious: No
  Sender: FDA-Public Use
  Company Number: US-NOVEN-12US003951

PATIENT
  Sex: Female

DRUGS (4)
  1. FENTANYL CITRATE [Suspect]
     Dosage: 25 UG/HR, UNK
     Route: 062
  2. LYRICA [Concomitant]
     Indication: BACK PAIN
     Dosage: UNK
  3. FENTANYL CITRATE [Suspect]
     Dosage: 2 25 UG/HR PATCHES EVERY 72 HRS
     Route: 062
  4. FENTANYL CITRATE [Suspect]
     Indication: BACK PAIN
     Dosage: 50 UG/HR, Q 72 HRS
     Route: 062
     Dates: start: 20120101, end: 20120118

REACTIONS (2)
  - PRODUCT QUALITY ISSUE [None]
  - INADEQUATE ANALGESIA [None]
